FAERS Safety Report 4474622-6 (Version None)
Quarter: 2004Q4

REPORT INFORMATION
  Report Type: 
  Country: None (occurrence: None)
  Receive Date: 20041008
  Receipt Date: 20040924
  Transmission Date: 20050328
  Serious: Yes (Death, Other)
  Sender: FDA-Public Use
  Company Number: 2004-BP-08835RO

PATIENT
  Sex: Female

DRUGS (3)
  1. CYCLOPHOSPHAMIDE [Suspect]
     Indication: SYSTEMIC LUPUS ERYTHEMATOSUS
     Dosage: IV
     Route: 042
  2. PREDNISONE TAB [Suspect]
     Indication: SYSTEMIC LUPUS ERYTHEMATOSUS
  3. AZATHIOPRINE [Suspect]
     Indication: SYSTEMIC LUPUS ERYTHEMATOSUS

REACTIONS (8)
  - CARDIOVASCULAR DISORDER [None]
  - CERVICAL DYSPLASIA [None]
  - CONDITION AGGRAVATED [None]
  - CONDYLOMA ACUMINATUM [None]
  - INTERSTITIAL LUNG DISEASE [None]
  - LYMPHOMA [None]
  - RENAL FAILURE CHRONIC [None]
  - SEPSIS [None]
